FAERS Safety Report 10712162 (Version 1)
Quarter: 2015Q1

REPORT INFORMATION
  Report Type: Report from Study
  Country: DE (occurrence: CO)
  Receive Date: 20150114
  Receipt Date: 20150114
  Transmission Date: 20150721
  Serious: Yes (Hospitalization)
  Sender: FDA-Public Use
  Company Number: DE-ACTELION-A-NJ2014-110612

PATIENT
  Age: 77 Year
  Sex: Female

DRUGS (7)
  1. FUROSEMIDE. [Concomitant]
     Active Substance: FUROSEMIDE
  2. RANITIDIN [Concomitant]
     Active Substance: RANITIDINE HYDROCHLORIDE
  3. WARFARIN [Suspect]
     Active Substance: WARFARIN
     Indication: PRODUCT USED FOR UNKNOWN INDICATION
     Route: 065
  4. LOSARTAN [Concomitant]
     Active Substance: LOSARTAN
  5. VENTAVIS [Suspect]
     Active Substance: ILOPROST
     Indication: PULMONARY HYPERTENSION
     Dosage: 30 MCG, QD
     Route: 055
     Dates: start: 20140527
  6. AMIODARONE [Concomitant]
     Active Substance: AMIODARONE
  7. LOVASTATIN. [Concomitant]
     Active Substance: LOVASTATIN

REACTIONS (4)
  - Labelled drug-drug interaction medication error [Unknown]
  - Arthralgia [Recovering/Resolving]
  - Contusion [Not Recovered/Not Resolved]
  - Accidental overdose [Not Recovered/Not Resolved]

NARRATIVE: CASE EVENT DATE: 20141222
